FAERS Safety Report 8708387 (Version 2)
Quarter: 2013Q1

REPORT INFORMATION
  Report Type: Spontaneous
  Country: BR (occurrence: BR)
  Receive Date: 20120730
  Receipt Date: 20130205
  Transmission Date: 20140127
  Serious: Yes (Hospitalization, Other)
  Sender: FDA-Public Use
  Company Number: PHHY2012BR065144

PATIENT
  Age: 59 Year
  Sex: Male

DRUGS (5)
  1. DIOVAN HCT [Suspect]
     Indication: CARDIAC DISORDER
     Dosage: 1 TABLET (160/12.5 MG) DAILY
     Route: 048
  2. DILTIAZEM HYDROCHLORIDE [Suspect]
     Indication: CARDIAC DISORDER
     Dosage: UNK UKN, UNK
  3. VYTORIN [Suspect]
     Indication: CARDIAC DISORDER
     Dosage: UNK UKN, UNK
  4. SOMALGIN [Suspect]
     Indication: CARDIAC DISORDER
     Dosage: UNK UKN, UNK
  5. ARADOIS [Suspect]
     Indication: HYPERTENSION
     Dosage: UNK UKN, UNK

REACTIONS (2)
  - Acute myocardial infarction [Recovering/Resolving]
  - Cerebrovascular accident [Recovered/Resolved]
